FAERS Safety Report 24363827 (Version 1)
Quarter: 2024Q3

REPORT INFORMATION
  Report Type: Report from Study
  Country: PT (occurrence: KR)
  Receive Date: 20240925
  Receipt Date: 20240925
  Transmission Date: 20241017
  Serious: Yes (Hospitalization, Other)
  Sender: SUNOVION
  Company Number: KR-ZBN-001-PMS-S15008

PATIENT

DRUGS (40)
  1. ESLICARBAZEPINE ACETATE [Suspect]
     Active Substance: ESLICARBAZEPINE ACETATE
     Indication: Epilepsy
     Dosage: 300 MILLIGRAM, QD
     Route: 048
     Dates: start: 20230109, end: 20230123
  2. ESLICARBAZEPINE ACETATE [Suspect]
     Active Substance: ESLICARBAZEPINE ACETATE
     Dosage: 400 MILLIGRAM, QD
     Route: 048
     Dates: start: 20230124, end: 20230509
  3. ESLICARBAZEPINE ACETATE [Suspect]
     Active Substance: ESLICARBAZEPINE ACETATE
     Dosage: 500 MILLIGRAM, QD
     Route: 048
     Dates: start: 20230510, end: 20230620
  4. ESLICARBAZEPINE ACETATE [Suspect]
     Active Substance: ESLICARBAZEPINE ACETATE
     Dosage: 600 MILLIGRAM, QD
     Route: 048
     Dates: start: 20230621, end: 20230705
  5. FYCOMPA [Concomitant]
     Active Substance: PERAMPANEL
     Indication: Epilepsy
     Dosage: 1 DOSAGE FORM, DAILY
     Route: 048
     Dates: start: 20230109
  6. PYRIDOXINE HYDROCHLORIDE [Suspect]
     Active Substance: PYRIDOXINE HYDROCHLORIDE
     Indication: Mitochondrial toxicity
     Dosage: 1 DOSAGE FORM, BID
     Route: 048
     Dates: start: 20230109
  7. L-CARN [Concomitant]
     Indication: Mitochondrial toxicity
     Dosage: 1.5 DOSAGE FORM, BID
     Route: 048
     Dates: start: 20230109
  8. IBUPROFEN [Concomitant]
     Active Substance: IBUPROFEN
     Indication: Nasopharyngitis
     Dosage: 0.75 DOSAGE FORM, TID
     Route: 048
     Dates: start: 20230418, end: 20230517
  9. Boryung meiact [Concomitant]
     Indication: Nasopharyngitis
     Dosage: 1 DOSAGE FORM, TID
     Route: 048
     Dates: start: 20230418, end: 20230517
  10. GASTER [Concomitant]
     Active Substance: FAMOTIDINE
     Indication: Prophylaxis
     Dosage: 1 DOSAGE FORM, TID
     Route: 048
     Dates: start: 20230418, end: 20230420
  11. PREDNISOLONE [Concomitant]
     Active Substance: PREDNISOLONE
     Indication: Prophylaxis
     Dosage: 1 DOSAGE FORM, TID
     Route: 048
     Dates: start: 20230418, end: 20230420
  12. VARIDASE [Concomitant]
     Indication: Nasopharyngitis
     Dosage: 1 DOSAGE FORM, TID
     Route: 048
     Dates: start: 20230418, end: 20230517
  13. SUDAFED [Concomitant]
     Active Substance: PSEUDOEPHEDRINE HYDROCHLORIDE
     Indication: Nasopharyngitis
     Dosage: 0.75 DOSAGE FORM, TID
     Route: 048
     Dates: start: 20230418, end: 20230517
  14. CANNABIDIOL [Concomitant]
     Active Substance: CANNABIDIOL
     Indication: Epilepsy
     Dosage: 0.7 MILLILITER, BID
     Route: 048
     Dates: start: 20230223, end: 20230325
  15. CANNABIDIOL [Concomitant]
     Active Substance: CANNABIDIOL
     Dosage: 1.3 MILLILITER, BID
     Route: 048
     Dates: start: 20230326, end: 20230327
  16. CANNABIDIOL [Concomitant]
     Active Substance: CANNABIDIOL
     Dosage: 1 MILLILITER, BID
     Route: 048
     Dates: start: 20230328, end: 20230412
  17. CANNABIDIOL [Concomitant]
     Active Substance: CANNABIDIOL
     Dosage: 1.2 MILLILITER, BID
     Route: 048
     Dates: start: 20230413, end: 20230704
  18. CANNABIDIOL [Concomitant]
     Active Substance: CANNABIDIOL
     Dosage: 1.5 MILLILITER, BID
     Route: 048
     Dates: start: 20230705
  19. CLOBAZAM [Concomitant]
     Active Substance: CLOBAZAM
     Indication: Epilepsy
     Dosage: 0.5 DOSAGE FORM, QD
     Route: 048
     Dates: start: 20230326, end: 20230523
  20. CLOBAZAM [Concomitant]
     Active Substance: CLOBAZAM
     Dosage: 1 DOSAGE FORM, BID
     Route: 048
     Dates: start: 20230223, end: 20230325
  21. CLOBAZAM [Concomitant]
     Active Substance: CLOBAZAM
     Dosage: 1 DOSAGE FORM, BID
     Route: 048
     Dates: start: 20230524, end: 20230704
  22. CLOBAZAM [Concomitant]
     Active Substance: CLOBAZAM
     Dosage: 0.5 DOSAGE FORM, BID
     Route: 048
     Dates: start: 20230705
  23. Q pam [Concomitant]
     Indication: Epilepsy
     Dosage: 1 DOSAGE FORM, BID
     Route: 048
     Dates: start: 20230223, end: 20230704
  24. Promag [Concomitant]
     Indication: Epilepsy
     Dosage: 2 DOSAGE FORM, BID
     Route: 048
     Dates: start: 20230222, end: 20230325
  25. Promag [Concomitant]
     Dosage: 1.75 DOSAGE FORM, BID
     Route: 048
     Dates: start: 20230326, end: 20230328
  26. Promag [Concomitant]
     Dosage: 1.5 DOSAGE FORM, BID
     Route: 048
     Dates: start: 20230329, end: 20230620
  27. Promag [Concomitant]
     Dosage: 1.75 DOSAGE FORM, BID
     Route: 048
     Dates: start: 20230621, end: 20230704
  28. TROPHAMINE [Concomitant]
     Active Substance: ALANINE\ARGININE\ASPARTIC ACID\CYSTEINE HYDROCHLORIDE\GLUTAMIC ACID\GLYCINE\HISTIDINE\ISOLEUCINE\LEU
     Indication: Mitochondrial toxicity
     Dosage: 1 DOSAGE FORM, QD
     Route: 040
     Dates: start: 20230327, end: 20230327
  29. LEVOTHYROXINE SODIUM [Concomitant]
     Active Substance: LEVOTHYROXINE SODIUM
     Indication: Hypothyroidism
     Dosage: 1 DOSAGE FORM, QD
     Route: 048
     Dates: start: 20230109
  30. DICAMAX D PLUS [Concomitant]
     Indication: Mitochondrial toxicity
     Dosage: 0.5 DOSAGE FORM, QD
     Route: 048
     Dates: start: 20230109, end: 20230420
  31. ZONISAMIDE [Concomitant]
     Active Substance: ZONISAMIDE
     Indication: Epilepsy
     Dosage: 0.25 DOSAGE FORM, BID
     Route: 048
     Dates: start: 20230621, end: 20230623
  32. ZONISAMIDE [Concomitant]
     Active Substance: ZONISAMIDE
     Dosage: 0.33 DOSAGE FORM, BID
     Route: 048
     Dates: start: 20230624, end: 20230626
  33. ZONISAMIDE [Concomitant]
     Active Substance: ZONISAMIDE
     Dosage: 0.5 DOSAGE FORM, BID
     Route: 048
     Dates: start: 20230627, end: 20230628
  34. ZONISAMIDE [Concomitant]
     Active Substance: ZONISAMIDE
     Dosage: 0.75 DOSAGE FORM, BID
     Route: 048
     Dates: start: 20230629, end: 20230701
  35. ZONISAMIDE [Concomitant]
     Active Substance: ZONISAMIDE
     Dosage: 1 DOSAGE FORM, BID
     Route: 048
     Dates: start: 20230702, end: 20230704
  36. ZONISAMIDE [Concomitant]
     Active Substance: ZONISAMIDE
     Dosage: 1.25 DOSAGE FORM, BID
     Route: 048
     Dates: start: 20230705
  37. KEPPRA [Concomitant]
     Active Substance: LEVETIRACETAM
     Indication: Epilepsy
     Dosage: 1 DOSAGE FORM, BID
     Route: 048
     Dates: start: 20230705
  38. DEPAKOTE [Concomitant]
     Active Substance: DIVALPROEX SODIUM
     Indication: Epilepsy
     Dosage: 1 DOSAGE FORM, TID
     Route: 048
     Dates: start: 20230705
  39. AFINITOR [Concomitant]
     Active Substance: EVEROLIMUS
     Indication: Cortical dysplasia
     Dosage: 0.5 DOSAGE FORM, QD
     Route: 048
     Dates: start: 20230707
  40. Circatonin pr [Concomitant]
     Indication: Prophylaxis
     Dosage: 1 DOSAGE FORM, QD
     Route: 048
     Dates: start: 20230705

REACTIONS (7)
  - Rash [Recovered/Resolved]
  - Asthenia [Recovered/Resolved]
  - Seizure [Recovered/Resolved]
  - Nasopharyngitis [Recovered/Resolved]
  - Hepatic enzyme increased [Recovered/Resolved]
  - Drug ineffective [Unknown]
  - Underdose [Recovered/Resolved]

NARRATIVE: CASE EVENT DATE: 20230101
